FAERS Safety Report 23890194 (Version 1)
Quarter: 2024Q2

REPORT INFORMATION
  Report Type: Spontaneous
  Country: US (occurrence: US)
  Receive Date: 20240523
  Receipt Date: 20240523
  Transmission Date: 20240716
  Serious: Yes (Hospitalization, Other)
  Sender: FDA-Public Use
  Company Number: US-PFIZER INC-202300300018

PATIENT

DRUGS (2)
  1. KEYTRUDA [Suspect]
     Active Substance: PEMBROLIZUMAB
     Indication: Renal cancer
     Dosage: 200 MILLIGRAM, Q3W
     Dates: start: 202303, end: 2024
  2. INLYTA [Suspect]
     Active Substance: AXITINIB
     Indication: Renal cancer
     Dosage: 6 MILLIGRAM PILLS PER DAY (1MG EACH)
     Dates: start: 202303, end: 2024

REACTIONS (6)
  - Renal failure [Unknown]
  - Blood creatinine increased [Unknown]
  - Dehydration [Unknown]
  - Pruritus [Unknown]
  - Insomnia [Unknown]
  - Protein total increased [Unknown]

NARRATIVE: CASE EVENT DATE: 20240101
